FAERS Safety Report 15164905 (Version 1)
Quarter: 2018Q3

REPORT INFORMATION
  Report Type: Spontaneous
  Country: JP (occurrence: JP)
  Receive Date: 20180719
  Receipt Date: 20180719
  Transmission Date: 20181010
  Serious: Yes (Death, Hospitalization, Other)
  Sender: FDA-Public Use
  Company Number: JP-SUN PHARMACEUTICAL INDUSTRIES LTD-2018RR-178718

PATIENT
  Age: 83 Year
  Sex: Female

DRUGS (4)
  1. CEFTRIAXONE. [Suspect]
     Active Substance: CEFTRIAXONE
     Indication: CELLULITIS
     Dosage: UNK
     Route: 042
  2. TOREMIFENE [Suspect]
     Active Substance: TOREMIFENE
     Indication: METASTASES TO LUNG
     Dosage: 12 MG, DAILY
     Route: 065
  3. ZOLEDRONIC ACID [Suspect]
     Active Substance: ZOLEDRONIC ACID
     Indication: METASTASES TO BONE
     Dosage: UNK
     Route: 065
  4. LETROZOLE. [Suspect]
     Active Substance: LETROZOLE
     Indication: OESTROGEN RECEPTOR POSITIVE BREAST CANCER
     Dosage: UNK
     Route: 065

REACTIONS (7)
  - Osteonecrosis of jaw [Unknown]
  - Renal impairment [Unknown]
  - Shock [Unknown]
  - Drug ineffective [Unknown]
  - Cellulitis [Unknown]
  - Sepsis [Fatal]
  - Mediastinitis [Unknown]
